FAERS Safety Report 17603998 (Version 1)
Quarter: 2020Q1

REPORT INFORMATION
  Report Type: Spontaneous
  Country: FR (occurrence: FR)
  Receive Date: 20200331
  Receipt Date: 20200331
  Transmission Date: 20200409
  Serious: Yes (Other)
  Sender: FDA-Public Use
  Company Number: FR-TEVA-2020-FR-1212737

PATIENT
  Age: 51 Year
  Sex: Female

DRUGS (17)
  1. CYTARABINE. [Suspect]
     Active Substance: CYTARABINE
     Indication: ACUTE LEUKAEMIA
     Dosage: 352 MG
     Route: 042
     Dates: start: 20200214, end: 20200220
  2. FUNGIZONE [Concomitant]
     Active Substance: AMPHOTERICIN B
     Indication: GASTROINTESTINAL CANDIDIASIS
     Dosage: 4 DOSAGE FORMS
     Route: 048
     Dates: start: 20200302
  3. CEFTAZIDIME. [Suspect]
     Active Substance: CEFTAZIDIME
     Indication: ANTIBIOTIC THERAPY
     Dosage: 6 GRAM
     Route: 042
     Dates: start: 20200217, end: 20200307
  4. HYDROXYZINE (CHLORHYDRATE D^) [Suspect]
     Active Substance: HYDROXYZINE HYDROCHLORIDE
     Indication: ANXIETY
     Dosage: 150 MG
     Route: 048
     Dates: start: 20200302, end: 20200303
  5. METOCLOPRAMIDE. [Concomitant]
     Active Substance: METOCLOPRAMIDE
     Indication: VOMITING
     Dosage: 60 MG
     Route: 048
     Dates: start: 20200227
  6. ALPRAZOLAM. [Suspect]
     Active Substance: ALPRAZOLAM
     Indication: ANXIETY
     Dosage: 0.25 MG
     Route: 048
     Dates: start: 20200301, end: 20200301
  7. DUPHALAC 10 G, POUDRE ORALE OU POUR SOLUTION RECTALE EN SACHET [Concomitant]
     Indication: CONSTIPATION
     Dosage: 6 DOSAGE FORM
     Route: 048
     Dates: start: 20200229
  8. MIDOSTAURINE [Concomitant]
     Active Substance: MIDOSTAURIN
     Indication: ACUTE LEUKAEMIA
     Dosage: 100 MG
     Route: 048
     Dates: start: 20200225
  9. IDARUBICINE (CHLORHYDRATE D^) [Suspect]
     Active Substance: IDARUBICIN HYDROCHLORIDE
     Indication: ACUTE LEUKAEMIA
     Dosage: 15.8 MG
     Route: 042
     Dates: start: 20200214, end: 20200218
  10. VANCOMYCINE [Suspect]
     Active Substance: VANCOMYCIN
     Indication: ANTIBIOTIC THERAPY
     Dosage: 3250 MG
     Route: 042
     Dates: start: 20200217, end: 20200303
  11. ACICLOVIR [Suspect]
     Active Substance: ACYCLOVIR
     Indication: PROPHYLAXIS
     Dosage: 250 MG
     Route: 042
     Dates: start: 20200222, end: 20200306
  12. AMBISOME [Suspect]
     Active Substance: AMPHOTERICIN B
     Indication: PYREXIA
     Dosage: 200 MG
     Route: 042
     Dates: start: 20200219, end: 20200306
  13. FENTANYL. [Suspect]
     Active Substance: FENTANYL
     Indication: PAIN
     Dosage: 200 MICROGRAM
     Route: 045
     Dates: start: 20200302, end: 20200306
  14. PARACETAMOL [Concomitant]
     Active Substance: ACETAMINOPHEN
     Indication: PAIN
     Dosage: IF PAIN, 500 MG
     Route: 042
     Dates: start: 20200227
  15. ONDANSETRON [Suspect]
     Active Substance: ONDANSETRON
     Indication: VOMITING
     Dosage: 8 MG
     Route: 042
     Dates: start: 20200227, end: 20200302
  16. MOVICOL [Suspect]
     Active Substance: POLYETHYLENE GLYCOL 3350\POTASSIUM CHLORIDE\SODIUM BICARBONATE\SODIUM CHLORIDE
     Indication: CONSTIPATION
     Dosage: 3 DOSAGE FORMS
     Route: 048
     Dates: start: 20200227, end: 20200306
  17. METRONIDAZOLE. [Suspect]
     Active Substance: METRONIDAZOLE
     Indication: PROPHYLAXIS
     Dosage: 500 MG
     Route: 042
     Dates: start: 20200217, end: 20200306

REACTIONS (1)
  - Rash maculo-papular [Recovered/Resolved]

NARRATIVE: CASE EVENT DATE: 20200302
